FAERS Safety Report 12287936 (Version 2)
Quarter: 2016Q2

REPORT INFORMATION
  Report Type: Spontaneous
  Country: US (occurrence: US)
  Receive Date: 20160420
  Receipt Date: 20160422
  Transmission Date: 20160815
  Serious: Yes (Other)
  Sender: FDA-Public Use
  Company Number: US-FRI-1000084050

PATIENT
  Age: 48 Year
  Sex: Female

DRUGS (3)
  1. OMEPRAZOLE. [Concomitant]
     Active Substance: OMEPRAZOLE
  2. LINZESS [Suspect]
     Active Substance: LINACLOTIDE
     Indication: IRRITABLE BOWEL SYNDROME
     Dosage: 145 MICROGRAM
     Route: 048
     Dates: start: 201501
  3. DOCUSATE [Concomitant]
     Active Substance: DOCUSATE

REACTIONS (6)
  - Renal surgery [Recovering/Resolving]
  - Hypertension [Recovered/Resolved]
  - Renal mass [Recovered/Resolved]
  - Vomiting [Recovered/Resolved]
  - Renal pain [Not Recovered/Not Resolved]
  - Off label use [Not Recovered/Not Resolved]

NARRATIVE: CASE EVENT DATE: 201501
